FAERS Safety Report 4460841-1 (Version None)
Quarter: 2004Q3

REPORT INFORMATION
  Report Type: 
  Country: None (occurrence: None)
  Receive Date: 20040923
  Receipt Date: 20040910
  Transmission Date: 20050211
  Serious: Yes (Other)
  Sender: FDA-Public Use
  Company Number: 2004-120145-NL

PATIENT
  Age: 32 Year
  Sex: Female
  Weight: 54.5 kg

DRUGS (4)
  1. CYCLESSA [Suspect]
     Indication: CONTRACEPTION
     Dosage: 1 DF QD ORAL
     Route: 048
     Dates: end: 20040815
  2. CYCLESSA [Suspect]
     Indication: DYSMENORRHOEA
     Dosage: 1 DF QD ORAL
     Route: 048
     Dates: end: 20040815
  3. CYCLESSA [Suspect]
     Indication: MENORRHAGIA
     Dosage: 1 DF QD ORAL
     Route: 048
     Dates: end: 20040815
  4. ADVIL [Concomitant]

REACTIONS (9)
  - DIZZINESS [None]
  - DYSARTHRIA [None]
  - FATIGUE [None]
  - HYPOAESTHESIA [None]
  - NAUSEA [None]
  - REFUSAL OF TREATMENT BY PATIENT [None]
  - SIMPLE PARTIAL SEIZURES [None]
  - TREATMENT NONCOMPLIANCE [None]
  - TUNNEL VISION [None]
